FAERS Safety Report 17137223 (Version 2)
Quarter: 2020Q2

REPORT INFORMATION
  Report Type: Spontaneous
  Country: US (occurrence: US)
  Receive Date: 20191210
  Receipt Date: 20200605
  Transmission Date: 20200713
  Serious: No
  Sender: FDA-Public Use
  Company Number: US-BAUSCH-BL-2019-060497

PATIENT
  Age: 56 Year
  Sex: Male

DRUGS (2)
  1. LUMIFY [Suspect]
     Active Substance: BRIMONIDINE TARTRATE
     Indication: OCULAR HYPERAEMIA
     Dosage: ONE DROP IN EACH EYE EACH DAY
     Route: 065
     Dates: start: 201908, end: 20191029
  2. CVS GENTLE TEARS [Suspect]
     Active Substance: DEXTRAN 70\HYPROMELLOSES
     Indication: PROPHYLAXIS
     Dosage: ONE IN MORNING, AFTERNOON AND NIGHT
     Route: 065

REACTIONS (3)
  - Ocular hyperaemia [Recovered/Resolved]
  - Product dose omission [Unknown]
  - Rebound effect [Recovered/Resolved]

NARRATIVE: CASE EVENT DATE: 20191029
